FAERS Safety Report 4841502-3 (Version None)
Quarter: 2005Q4

REPORT INFORMATION
  Report Type: 
  Country: None (occurrence: None)
  Receive Date: 20051130
  Receipt Date: 20050810
  Transmission Date: 20060501
  Serious: No
  Sender: FDA-Public Use
  Company Number: US-GLAXOSMITHKLINE-A0569703A

PATIENT
  Age: 31 Year
  Sex: Male

DRUGS (2)
  1. WELLBUTRIN XL [Suspect]
     Dosage: 150MG PER DAY
     Route: 048
     Dates: start: 20050701
  2. NO CONCURRENT MEDICATION [Concomitant]

REACTIONS (2)
  - DISTURBANCE IN ATTENTION [None]
  - IRRITABILITY [None]
